FAERS Safety Report 8166843-6 (Version None)
Quarter: 2012Q1

REPORT INFORMATION
  Report Type: 
  Country: None (occurrence: None)
  Receive Date: 20120227
  Receipt Date: 20120214
  Transmission Date: 20120608
  Serious: No
  Sender: FDA-Public Use
  Company Number: US-BAYER-2012-018476

PATIENT
  Sex: Female

DRUGS (2)
  1. MIRENA [Suspect]
     Dosage: 20 MG, UNK
     Route: 015
  2. ADDERALL 5 [Concomitant]
     Indication: FATIGUE

REACTIONS (3)
  - HEADACHE [None]
  - HYPERHIDROSIS [None]
  - ANXIETY [None]
